FAERS Safety Report 7998100-2 (Version None)
Quarter: 2011Q4

REPORT INFORMATION
  Report Type: 
  Country: None (occurrence: None)
  Receive Date: 20111221
  Receipt Date: 20110126
  Transmission Date: 20120403
  Serious: No
  Sender: FDA-Public Use
  Company Number: US-GLAXOSMITHKLINE-A0909487A

PATIENT
  Age: 47 Year
  Sex: Male

DRUGS (10)
  1. LOVAZA [Suspect]
     Indication: BLOOD CHOLESTEROL INCREASED
     Dosage: 2CAP TWICE PER DAY
     Route: 048
     Dates: start: 20100101
  2. CARVEDILOL [Concomitant]
  3. METFORMIN HCL [Concomitant]
  4. GLUCOSAMINE SULFATE [Concomitant]
  5. VITAMIN B1 TAB [Concomitant]
  6. VITAMIN B3 [Concomitant]
  7. CARDIOTEK [Concomitant]
  8. IRON [Concomitant]
  9. VITAMIN B-12 [Concomitant]
  10. VITAMIN E [Concomitant]

REACTIONS (4)
  - FATIGUE [None]
  - NAUSEA [None]
  - GASTROOESOPHAGEAL REFLUX DISEASE [None]
  - BACK PAIN [None]
